FAERS Safety Report 5972017-7 (Version None)
Quarter: 2008Q4

REPORT INFORMATION
  Report Type: 
  Country: None (occurrence: None)
  Receive Date: 20081125
  Receipt Date: 20081110
  Transmission Date: 20090506
  Serious: Yes (Hospitalization)
  Sender: FDA-Public Use
  Company Number: 2008PL000208

PATIENT
  Age: 53 Year
  Sex: Male

DRUGS (6)
  1. AZATHIOPRINE [Suspect]
     Indication: SYSTEMIC LUPUS ERYTHEMATOSUS
     Dosage: 100 MG; QD
  2. STEROIDS (CON.) [Concomitant]
  3. ENALAPRIL (CON.) [Concomitant]
  4. HYDROXYCHLOROQUINE (CON.) [Concomitant]
  5. LYSINE ACETYLSALICYLATE (CON.) [Concomitant]
  6. PREDNISOLONE (CON.) [Concomitant]

REACTIONS (10)
  - C-REACTIVE PROTEIN INCREASED [None]
  - FATIGUE [None]
  - HAEMOGLOBIN DECREASED [None]
  - HYPERGAMMAGLOBULINAEMIA [None]
  - NAUSEA [None]
  - PLATELET COUNT DECREASED [None]
  - PYREXIA [None]
  - TRANSAMINASES INCREASED [None]
  - VISCERAL LEISHMANIASIS [None]
  - WEIGHT DECREASED [None]
